FAERS Safety Report 9896154 (Version 2)
Quarter: 2014Q1

REPORT INFORMATION
  Report Type: Spontaneous
  Country: US (occurrence: US)
  Receive Date: 20140213
  Receipt Date: 20140213
  Transmission Date: 20141002
  Serious: No
  Sender: FDA-Public Use
  Company Number: US-BRISTOL-MYERS SQUIBB COMPANY-17315789

PATIENT
  Age: 59 Year
  Sex: Female
  Weight: 86.17 kg

DRUGS (19)
  1. ABATACEPT SUBQ INJECTION 125MG/ML [Suspect]
     Indication: RHEUMATOID ARTHRITIS
     Dosage: 125MG/1ML
     Route: 058
  2. COUMADIN TABS 1 MG [Concomitant]
  3. SYNTHROID [Concomitant]
  4. ARAVA [Concomitant]
  5. GLUCOPHAGE [Concomitant]
     Dosage: TABS
  6. OMEPRAZOLE [Concomitant]
  7. HYDROCHLOROTHIAZIDE [Concomitant]
  8. ADVAIR DISKUS [Concomitant]
     Dosage: 250-50 MCG/DOSE INHALER
  9. ADVAIR DISKUS [Concomitant]
     Dosage: 1DF:100/50 UNITS NOS
  10. METOPROLOL [Concomitant]
  11. CETRIZINE [Concomitant]
  12. KLOR-CON [Concomitant]
  13. ALBUTEROL [Concomitant]
  14. OXYCODONE [Concomitant]
  15. LOPERAMIDE [Concomitant]
  16. LOSARTAN [Concomitant]
  17. VITAMIN D [Concomitant]
     Dosage: 1DF:1000 UNITS
  18. FOLIC ACID [Concomitant]
  19. TYLENOL [Concomitant]

REACTIONS (2)
  - Sinus congestion [Unknown]
  - Vision blurred [Unknown]
